FAERS Safety Report 21612607 (Version 2)
Quarter: 2023Q1

REPORT INFORMATION
  Report Type: Spontaneous
  Country: BR (occurrence: BR)
  Receive Date: 20221118
  Receipt Date: 20230215
  Transmission Date: 20230417
  Serious: Yes (Hospitalization, Other)
  Sender: FDA-Public Use
  Company Number: BR-BRISTOL-MYERS SQUIBB COMPANY-2022-138491

PATIENT
  Age: 67 Year
  Sex: Male
  Weight: 112 kg

DRUGS (13)
  1. OPDIVO [Suspect]
     Active Substance: NIVOLUMAB
     Indication: Metastatic malignant melanoma
     Route: 042
  2. OPDIVO [Suspect]
     Active Substance: NIVOLUMAB
     Route: 042
  3. OPDIVO [Suspect]
     Active Substance: NIVOLUMAB
     Route: 042
  4. YERVOY [Suspect]
     Active Substance: IPILIMUMAB
     Indication: Metastatic malignant melanoma
     Dosage: COMBINED FOR 4 DOSES (INDUCTION PHASE)
     Route: 042
  5. DEXAMETHASONE [Suspect]
     Active Substance: DEXAMETHASONE
     Indication: Product used for unknown indication
  6. LINAGLIPTIN [Concomitant]
     Active Substance: LINAGLIPTIN
     Indication: Product used for unknown indication
  7. FORFIG [Concomitant]
     Indication: Product used for unknown indication
  8. XIGDUO XR [Concomitant]
     Active Substance: DAPAGLIFLOZIN PROPANEDIOL\METFORMIN HYDROCHLORIDE
     Indication: Product used for unknown indication
  9. GLUCOPHAGE [Concomitant]
     Active Substance: METFORMIN HYDROCHLORIDE
     Indication: Product used for unknown indication
  10. GLUCOPHAGE [Concomitant]
     Active Substance: METFORMIN HYDROCHLORIDE
  11. GLUCOPHAGE [Concomitant]
     Active Substance: METFORMIN HYDROCHLORIDE
  12. GLUCOPHAGE [Concomitant]
     Active Substance: METFORMIN HYDROCHLORIDE
  13. GLUCOPHAGE [Concomitant]
     Active Substance: METFORMIN HYDROCHLORIDE

REACTIONS (21)
  - Malignant neoplasm progression [Recovering/Resolving]
  - Vision blurred [Unknown]
  - Pulmonary mass [Unknown]
  - Immune-mediated thyroiditis [Unknown]
  - Rash maculo-papular [Unknown]
  - Urticaria [Unknown]
  - Apathy [Unknown]
  - Lethargy [Unknown]
  - Depressed mood [Unknown]
  - Decreased appetite [Unknown]
  - Weight decreased [Unknown]
  - Hepatitis [Unknown]
  - Hypomagnesaemia [Unknown]
  - Hyperkalaemia [Unknown]
  - Hypoglycaemia [Unknown]
  - Polyuria [Unknown]
  - Proteinuria [Unknown]
  - Hypophysitis [Unknown]
  - Glucocorticoid deficiency [Unknown]
  - Hypogonadism [Unknown]
  - Hypothyroidism [Unknown]
